FAERS Safety Report 24592766 (Version 1)
Quarter: 2024Q4

REPORT INFORMATION
  Report Type: Spontaneous
  Country: US (occurrence: None)
  Receive Date: 20241107
  Receipt Date: 20241107
  Transmission Date: 20250115
  Serious: No
  Sender: Public
  Company Number: None

PATIENT
  Age: 18 Year
  Sex: Male
  Weight: 60.78 kg

DRUGS (1)
  1. ADBRY [Suspect]
     Active Substance: TRALOKINUMAB-LDRM
     Indication: Dermatitis atopic
     Dosage: OTHER FREQUENCY : 600MG(2PENS)SUBCUTANEOUSLYONDAY1,THEN300MG (1PEN);?
     Dates: start: 202411

REACTIONS (2)
  - Skin exfoliation [None]
  - Fungal skin infection [None]
